FAERS Safety Report 9466617 (Version 3)
Quarter: 2014Q2

REPORT INFORMATION
  Report Type: Spontaneous
  Country: CN (occurrence: CN)
  Receive Date: 20130820
  Receipt Date: 20140515
  Transmission Date: 20141212
  Serious: Yes (Hospitalization, Other)
  Sender: FDA-Public Use
  Company Number: PHHY2013CN089493

PATIENT
  Age: 71 Year
  Sex: Female

DRUGS (3)
  1. ACLASTA [Suspect]
     Indication: OSTEOPOROSIS
     Dosage: 5 MG: 100ML
     Route: 042
     Dates: start: 20130227
  2. METOPROLOL [Concomitant]
     Indication: HYPERTENSION
     Dosage: 12.5 MG, QD
  3. APROVEL [Concomitant]
     Indication: HYPERTENSION
     Dosage: 25 MG, QD

REACTIONS (9)
  - Feeling hot [Recovered/Resolved]
  - Groin pain [Recovering/Resolving]
  - Bone pain [Recovering/Resolving]
  - Musculoskeletal pain [Recovering/Resolving]
  - Abdominal pain [Recovering/Resolving]
  - Pyrexia [Recovering/Resolving]
  - Neuropathy peripheral [Unknown]
  - Osteoarthritis [Unknown]
  - Influenza like illness [Recovering/Resolving]
